FAERS Safety Report 6285280-2 (Version None)
Quarter: 2009Q3

REPORT INFORMATION
  Report Type: 
  Country: None (occurrence: None)
  Receive Date: 20090727
  Receipt Date: 20090714
  Transmission Date: 20100115
  Serious: Yes (Other)
  Sender: FDA-Public Use
  Company Number: NL-JNJFOC-20090503370

PATIENT
  Sex: Female
  Weight: 54 kg

DRUGS (8)
  1. ZALDIAR [Suspect]
     Indication: RHEUMATOID ARTHRITIS
     Route: 048
     Dates: start: 20081001, end: 20090201
  2. ARAVA [Concomitant]
  3. NEXIUM [Concomitant]
  4. CALCICHEW D3 [Concomitant]
  5. ALENDRONATE SODIUM [Concomitant]
  6. CLINDAMYCIN HYDROCHLORIDE [Concomitant]
  7. PLAQUENIL [Concomitant]
  8. PARACETAMOL WITH CODEINE PHOSPHATE [Concomitant]

REACTIONS (3)
  - NEUROPATHY PERIPHERAL [None]
  - OSTEITIS [None]
  - OSTEOMYELITIS [None]
